FAERS Safety Report 18119464 (Version 1)
Quarter: 2020Q3

REPORT INFORMATION
  Report Type: Spontaneous
  Country: CA (occurrence: CA)
  Receive Date: 20200806
  Receipt Date: 20200806
  Transmission Date: 20201103
  Serious: Yes (Hospitalization)
  Sender: FDA-Public Use
  Company Number: CA-PFIZER INC-2020295795

PATIENT
  Age: 61 Year
  Sex: Male

DRUGS (19)
  1. LEVETIRACETAM. [Concomitant]
     Active Substance: LEVETIRACETAM
     Dosage: UNK
  2. NICOTINE. [Concomitant]
     Active Substance: NICOTINE
     Dosage: UNK
  3. SODIUM BICARBONATE. [Concomitant]
     Active Substance: SODIUM BICARBONATE
     Dosage: UNK
  4. SPIRIVA [Concomitant]
     Active Substance: TIOTROPIUM BROMIDE MONOHYDRATE
     Dosage: UNK
  5. VENTOLINE [SALBUTAMOL] [Concomitant]
     Active Substance: ALBUTEROL SULFATE
     Dosage: UNK
  6. ZENHALE [Concomitant]
     Active Substance: FORMOTEROL FUMARATE\MOMETASONE FUROATE
     Dosage: UNK
  7. FUROSEMIDE. [Concomitant]
     Active Substance: FUROSEMIDE
     Dosage: UNK
  8. ARANESP [Concomitant]
     Active Substance: DARBEPOETIN ALFA
     Dosage: UNK
  9. IRON [Concomitant]
     Active Substance: IRON
     Dosage: UNK
  10. GABAPENTIN. [Suspect]
     Active Substance: GABAPENTIN
     Dosage: 100 MG
  11. BACLOFEN. [Suspect]
     Active Substance: BACLOFEN
     Dosage: 20 MG
  12. PANTOLOC [PANTOPRAZOLE] [Concomitant]
     Active Substance: PANTOPRAZOLE SODIUM
     Dosage: UNK
  13. SENNOSIDES. [Concomitant]
     Active Substance: SENNOSIDES
     Dosage: UNK
  14. TYLENOL [Concomitant]
     Active Substance: ACETAMINOPHEN
     Dosage: UNK
  15. GABAPENTIN. [Suspect]
     Active Substance: GABAPENTIN
     Dosage: 300 MG
  16. HYDROMORPHONE [Concomitant]
     Active Substance: HYDROMORPHONE
     Dosage: UNK
  17. WARFARIN [Concomitant]
     Active Substance: WARFARIN
     Dosage: UNK
  18. BISOPROLOL [Suspect]
     Active Substance: BISOPROLOL
     Dosage: 2.5 MG, 1 EVERY 1 DAYS
     Route: 048
  19. VITAMIN C [Concomitant]
     Active Substance: ASCORBIC ACID
     Dosage: UNK

REACTIONS (9)
  - Hypotension [Unknown]
  - Hypoxia [Unknown]
  - Mental status changes [Unknown]
  - Metabolic acidosis [Unknown]
  - Bradycardia [Unknown]
  - Depressed level of consciousness [Unknown]
  - Acute kidney injury [Unknown]
  - Urine output decreased [Unknown]
  - Toxicity to various agents [Unknown]
